FAERS Safety Report 10069573 (Version 2)
Quarter: 2014Q2

REPORT INFORMATION
  Report Type: Report from Study
  Country: DE (occurrence: DE)
  Receive Date: 20140410
  Receipt Date: 20140410
  Transmission Date: 20141212
  Serious: Yes (Hospitalization)
  Sender: FDA-Public Use
  Company Number: DE-ROCHE-1060978

PATIENT
  Age: 44 Year
  Sex: Female
  Weight: 59 kg

DRUGS (5)
  1. BEVACIZUMAB [Suspect]
     Indication: BREAST CANCER
     Dosage: INDICATION: ULCERATED BREAST CARCINOMA
     Route: 042
     Dates: start: 20111205, end: 20111205
  2. BEVACIZUMAB [Suspect]
     Dosage: LAST DOSE PRIOR TO SAE: 26/MAR/2012
     Route: 042
     Dates: start: 20120326, end: 20120326
  3. TAXOL [Concomitant]
     Indication: BREAST CANCER
     Dosage: INDICATION: ULCERATED BREAST CARCINOMA?LAST DOSE PRIOR TO AE: 02/APR/2012
     Route: 042
     Dates: start: 20111205
  4. XELODA [Concomitant]
     Indication: BREAST CANCER
     Route: 065
     Dates: start: 20120918
  5. CANDESARTAN [Concomitant]
     Route: 065
     Dates: start: 20080101

REACTIONS (2)
  - Anxiety [Recovered/Resolved]
  - Palpitations [Recovered/Resolved]
